FAERS Safety Report 15099165 (Version 2)
Quarter: 2018Q3

REPORT INFORMATION
  Report Type: Spontaneous
  Country: US (occurrence: US)
  Receive Date: 20180702
  Receipt Date: 20180712
  Transmission Date: 20181010
  Serious: Yes (Life-Threatening, Other)
  Sender: FDA-Public Use
  Company Number: US-TEVA-2018-US-916168

PATIENT
  Sex: Female

DRUGS (1)
  1. COPAXONE [Suspect]
     Active Substance: GLATIRAMER ACETATE
     Indication: MULTIPLE SCLEROSIS
     Route: 065
     Dates: start: 201710

REACTIONS (4)
  - Swelling face [Unknown]
  - Respiratory arrest [Unknown]
  - Anaphylactic shock [Unknown]
  - Seizure [Unknown]

NARRATIVE: CASE EVENT DATE: 20180620
